FAERS Safety Report 5264494-4 (Version None)
Quarter: 2007Q1

REPORT INFORMATION
  Report Type: 
  Country: None (occurrence: None)
  Receive Date: 20070314
  Receipt Date: 20070301
  Transmission Date: 20070707
  Serious: Yes (Other)
  Sender: FDA-Public Use
  Company Number: PHBS2007BR03859

PATIENT
  Age: 39 Year
  Sex: Male
  Weight: 153 kg

DRUGS (5)
  1. LOSARTAN POTASSIUM [Concomitant]
  2. DIOVAN [Suspect]
     Dosage: 320 MG, QD
     Route: 048
  3. HYDROCHLOROTHIAZIDE [Concomitant]
     Dosage: 25 MG, QD
     Route: 048
  4. ASPIRIN [Concomitant]
     Dosage: UNK, QD
     Route: 048
  5. ADALAT [Concomitant]
     Dosage: 30 MG, BID
     Route: 048

REACTIONS (1)
  - ANGINA PECTORIS [None]
